FAERS Safety Report 26154319 (Version 1)
Quarter: 2025Q4

REPORT INFORMATION
  Report Type: Spontaneous
  Country: CN (occurrence: CN)
  Receive Date: 20251215
  Receipt Date: 20251215
  Transmission Date: 20260117
  Serious: Yes (Hospitalization, Other)
  Sender: SANOFI AVENTIS
  Company Number: CN-GLAXOSMITHKLINE-CN2020APC144370

PATIENT
  Age: 39 Year
  Sex: Male
  Weight: 50 kg

DRUGS (7)
  1. MOXIFLOXACIN HYDROCHLORIDE [Suspect]
     Active Substance: MOXIFLOXACIN HYDROCHLORIDE
     Indication: Pulmonary tuberculosis
     Dosage: UNK
     Dates: end: 20200723
  2. RIFAMPIN [Suspect]
     Active Substance: RIFAMPIN
     Indication: Pulmonary tuberculosis
     Dosage: 0.45 G, QD
     Route: 048
     Dates: start: 20200701, end: 20200723
  3. COLCHICINE [Suspect]
     Active Substance: COLCHICINE
     Indication: Bacterial pericarditis
     Dosage: 0.5 G, QD
     Route: 048
     Dates: start: 20200716, end: 20200722
  4. COLCHICINE [Suspect]
     Active Substance: COLCHICINE
     Indication: Pericardial effusion
  5. ISONIAZID [Suspect]
     Active Substance: ISONIAZID
     Indication: Pulmonary tuberculosis
     Dosage: UNK
     Dates: end: 20200723
  6. IBUPROFEN [Suspect]
     Active Substance: IBUPROFEN
     Indication: Bacterial pericarditis
     Dosage: 1.2 G, QD
     Route: 048
     Dates: start: 20200630, end: 20200722
  7. IBUPROFEN [Suspect]
     Active Substance: IBUPROFEN
     Indication: Pericardial effusion

REACTIONS (9)
  - Renal failure [Recovering/Resolving]
  - Blood urea increased [Recovering/Resolving]
  - Blood creatinine increased [Recovering/Resolving]
  - Blood uric acid increased [Recovering/Resolving]
  - Renal impairment [Recovering/Resolving]
  - Oedema peripheral [Recovering/Resolving]
  - Chest discomfort [Recovering/Resolving]
  - Dyspnoea exertional [Recovering/Resolving]
  - Condition aggravated [Unknown]

NARRATIVE: CASE EVENT DATE: 20200701
